FAERS Safety Report 12168483 (Version 13)
Quarter: 2017Q4

REPORT INFORMATION
  Report Type: Spontaneous
  Country: US (occurrence: US)
  Receive Date: 20160310
  Receipt Date: 20171221
  Transmission Date: 20180320
  Serious: Yes (Hospitalization, Other)
  Sender: FDA-Public Use
  Company Number: US-ACTELION PHARMACEUTICALS US, INC.-A-NJ2016-132241

PATIENT
  Age: 17 Year
  Sex: Female
  Weight: 61.22 kg

DRUGS (15)
  1. OPSUMIT [Suspect]
     Active Substance: MACITENTAN
     Indication: PULMONARY ARTERIAL HYPERTENSION
     Dosage: 10 MG, QD
     Route: 048
     Dates: start: 20140426
  2. ADEMPAS [Suspect]
     Active Substance: RIOCIGUAT
     Indication: PRODUCT USED FOR UNKNOWN INDICATION
     Route: 065
  3. LORATADINE. [Concomitant]
     Active Substance: LORATADINE
  4. HYDROXYZINE HCL [Concomitant]
     Active Substance: HYDROXYZINE HYDROCHLORIDE
  5. VITAMIN E [Concomitant]
     Active Substance: .ALPHA.-TOCOPHEROL
  6. UPTRAVI [Suspect]
     Active Substance: SELEXIPAG
     Indication: PULMONARY ARTERIAL HYPERTENSION
     Dosage: 200 MCG, BID
     Route: 048
     Dates: start: 20160216
  7. MEFENAMIC ACID. [Concomitant]
     Active Substance: MEFENAMIC ACID
  8. ADCIRCA [Concomitant]
     Active Substance: TADALAFIL
  9. UPTRAVI [Suspect]
     Active Substance: SELEXIPAG
     Dosage: 600 MCG, BID
     Route: 048
     Dates: start: 20160317
  10. CETRIZINE [Suspect]
     Active Substance: CETIRIZINE HYDROCHLORIDE
     Indication: PRODUCT USED FOR UNKNOWN INDICATION
     Route: 065
  11. VIIBRYD [Concomitant]
     Active Substance: VILAZODONE HYDROCHLORIDE
  12. FISH OIL [Concomitant]
     Active Substance: FISH OIL
  13. BUPROPION HCL [Concomitant]
     Active Substance: BUPROPION HYDROCHLORIDE
  14. UPTRAVI [Suspect]
     Active Substance: SELEXIPAG
     Dosage: 400 MCG, BID
     Route: 048
  15. UPTRAVI [Suspect]
     Active Substance: SELEXIPAG
     Dosage: 800 MCG, BID
     Route: 048
     Dates: start: 201605

REACTIONS (25)
  - Disturbance in attention [Unknown]
  - Drug intolerance [Unknown]
  - Muscle spasms [Unknown]
  - Tunnel vision [Unknown]
  - Feeling cold [Unknown]
  - Thymus disorder [Unknown]
  - Facial paresis [Not Recovered/Not Resolved]
  - Sinusitis [Unknown]
  - Pain in jaw [Unknown]
  - Hypersensitivity [Unknown]
  - Dyskinesia [Unknown]
  - Cough [Unknown]
  - Decreased appetite [Unknown]
  - Fatigue [Unknown]
  - Flushing [Unknown]
  - Myasthenia gravis [Not Recovered/Not Resolved]
  - Diarrhoea [Unknown]
  - Drug dose omission [Unknown]
  - Dysmenorrhoea [Unknown]
  - Rhinorrhoea [Unknown]
  - Nausea [Unknown]
  - Dizziness [Unknown]
  - Feeling hot [Unknown]
  - Headache [Recovered/Resolved]
  - Muscular weakness [Not Recovered/Not Resolved]

NARRATIVE: CASE EVENT DATE: 201605
